FAERS Safety Report 5808517-X (Version None)
Quarter: 2008Q3

REPORT INFORMATION
  Report Type: 
  Country: None (occurrence: None)
  Receive Date: 20080710
  Receipt Date: 20080710
  Transmission Date: 20090109
  Serious: No
  Sender: FDA-Public Use
  Company Number: None

PATIENT
  Sex: Female

DRUGS (8)
  1. REVLIMID [Suspect]
     Dosage: 15MG DAILY X21D/28D PO
     Route: 048
     Dates: start: 20080131
  2. REVLIMID [Suspect]
  3. LEVOTHROID [Concomitant]
  4. CLONAZEPAM [Concomitant]
  5. HYDROMORPHONE HCL [Concomitant]
  6. DICYCLOMINE [Concomitant]
  7. NOVOLIN R [Concomitant]
  8. LISINOPRIL [Concomitant]

REACTIONS (3)
  - NEUTROPENIA [None]
  - PRURITUS GENERALISED [None]
  - RASH GENERALISED [None]
